FAERS Safety Report 20333448 (Version 12)
Quarter: 2023Q1

REPORT INFORMATION
  Report Type: Spontaneous
  Country: US (occurrence: US)
  Receive Date: 20220113
  Receipt Date: 20230317
  Transmission Date: 20230417
  Serious: Yes (Other)
  Sender: FDA-Public Use
  Company Number: US-PFIZER INC-202101882172

PATIENT
  Age: 74 Year
  Sex: Female

DRUGS (3)
  1. IBRANCE [Suspect]
     Active Substance: PALBOCICLIB
     Indication: Breast cancer female
     Dosage: 125 MG, CYCLIC (DAILY, 28 DAY SUPPLY)
     Route: 048
     Dates: start: 202105
  2. IBRANCE [Suspect]
     Active Substance: PALBOCICLIB
     Indication: Invasive lobular breast carcinoma
     Dosage: 125 MG
     Route: 048
  3. ANASTROZOLE [Concomitant]
     Active Substance: ANASTROZOLE
     Dosage: UNK

REACTIONS (10)
  - Macular degeneration [Not Recovered/Not Resolved]
  - Blindness [Unknown]
  - Alopecia [Unknown]
  - Fatigue [Unknown]
  - Chronic obstructive pulmonary disease [Unknown]
  - Malaise [Unknown]
  - Eye disorder [Unknown]
  - Hypotension [Unknown]
  - Pain [Unknown]
  - Illness [Unknown]

NARRATIVE: CASE EVENT DATE: 20211101
